FAERS Safety Report 6781271-3 (Version None)
Quarter: 2010Q2

REPORT INFORMATION
  Report Type: 
  Country: None (occurrence: None)
  Receive Date: 20100621
  Receipt Date: 20100608
  Transmission Date: 20101027
  Serious: Yes (Other)
  Sender: FDA-Public Use
  Company Number: PHEH2006US10893

PATIENT
  Age: 61 Year
  Sex: Female
  Weight: 68.027 kg

DRUGS (14)
  1. ZOMETA [Suspect]
     Indication: METASTASES TO BONE
  2. FOSAMAX [Suspect]
     Route: 048
  3. OXYCONTIN [Suspect]
     Dosage: 40 MG, BID
     Route: 048
  4. AMBIEN [Suspect]
     Dosage: 5 MG, QHS
  5. SINGULAIR [Concomitant]
     Dosage: 10 MG, QD
     Route: 048
  6. BEXTRA [Concomitant]
  7. DIOVAN [Concomitant]
  8. EFFEXOR [Concomitant]
  9. ADVAIR DISKUS 100/50 [Concomitant]
  10. LORTAB [Concomitant]
  11. XANAX [Concomitant]
     Dosage: 0.5 DF, PRN
  12. AROMASIN [Concomitant]
     Dosage: 25 MG, QD
     Route: 048
  13. MOBIC [Concomitant]
     Dosage: 7.5 MG, QD
     Route: 048
  14. FASLODEX [Concomitant]

REACTIONS (30)
  - ALLERGIC SINUSITIS [None]
  - ANXIETY [None]
  - AORTIC ARTERIOSCLEROSIS [None]
  - ARTHRITIS [None]
  - ASTHMA [None]
  - BREAST CALCIFICATIONS [None]
  - BRONCHITIS [None]
  - BRUXISM [None]
  - CHRONIC OBSTRUCTIVE PULMONARY DISEASE [None]
  - CRYING [None]
  - DIZZINESS [None]
  - DYSPNOEA [None]
  - EAR PAIN [None]
  - EMPHYSEMA [None]
  - HEADACHE [None]
  - HYPERTENSION [None]
  - INJURY [None]
  - INTRACRANIAL ANEURYSM [None]
  - JOINT SWELLING [None]
  - NAUSEA [None]
  - OSTEONECROSIS OF JAW [None]
  - OSTEOPOROSIS [None]
  - PAIN [None]
  - PLEURAL EFFUSION [None]
  - PLEURAL FIBROSIS [None]
  - POLLAKIURIA [None]
  - SEASONAL ALLERGY [None]
  - STRESS [None]
  - VERTIGO [None]
  - VISION BLURRED [None]
